FAERS Safety Report 7368113-2 (Version None)
Quarter: 2011Q1

REPORT INFORMATION
  Report Type: 
  Country: None (occurrence: None)
  Receive Date: 20110225
  Receipt Date: 20110128
  Transmission Date: 20110831
  Serious: No
  Sender: FDA-Public Use
  Company Number: 321741

PATIENT
  Age: 61 Year
  Sex: Female

DRUGS (4)
  1. CARVEDILOL [Concomitant]
  2. SYNTHROID [Concomitant]
  3. VICTOZA [Suspect]
     Indication: TYPE 2 DIABETES MELLITUS
     Dosage: 0.6 MG, QD, SUBCUTANEOUS, 0.3 MG, SUBCUTANEOUS
     Route: 058
     Dates: start: 20110111
  4. ENALAPRIL MALEATE [Concomitant]

REACTIONS (5)
  - ABDOMINAL DISCOMFORT [None]
  - DECREASED APPETITE [None]
  - DISORIENTATION [None]
  - NAUSEA [None]
  - ABDOMINAL PAIN [None]
